FAERS Safety Report 8611916-4 (Version None)
Quarter: 2012Q3

REPORT INFORMATION
  Report Type: 
  Country: None (occurrence: None)
  Receive Date: 20120822
  Receipt Date: 20120814
  Transmission Date: 20120928
  Serious: Yes (Hospitalization)
  Sender: FDA-Public Use
  Company Number: US-BAYER-2012-039486

PATIENT
  Sex: Female
  Weight: 68 kg

DRUGS (6)
  1. MULTI-VITAMIN [Concomitant]
     Dosage: UNK
  2. GLUCOSAMINE SULFATE W/CHONDROITIN [Concomitant]
     Dosage: UNK
  3. GLUMETZA [Concomitant]
     Dosage: 500 MG,2 TABLETS DAILY WITH DINNER
  4. DROSPIRENONE AND ETHINYL ESTRADIOL [Suspect]
     Indication: CONTRACEPTION
     Dosage: UNK
     Dates: start: 20100401, end: 20110401
  5. FISH OIL [Concomitant]
     Dosage: UNK
  6. OMEGA [DOCOSAHEXANOIC ACID,EICOSAPENTAENOIC ACID] [Concomitant]
     Dosage: UNK
     Dates: start: 20050101, end: 20110101

REACTIONS (5)
  - DEEP VEIN THROMBOSIS [None]
  - PULMONARY EMBOLISM [None]
  - INJURY [None]
  - PAIN [None]
  - GRANULOMA [None]
